FAERS Safety Report 7228480-7 (Version None)
Quarter: 2011Q1

REPORT INFORMATION
  Report Type: 
  Country: None (occurrence: None)
  Receive Date: 20110114
  Receipt Date: 20110107
  Transmission Date: 20110831
  Serious: Yes (Hospitalization, Other)
  Sender: FDA-Public Use
  Company Number: US-US-EMD SERONO, INC.-7018042

PATIENT
  Sex: Female

DRUGS (6)
  1. REBIF [Suspect]
     Indication: MULTIPLE SCLEROSIS
     Route: 058
     Dates: start: 20080929, end: 20101201
  2. REBIF [Suspect]
     Route: 058
     Dates: start: 20101201
  3. OXYCONTIN [Concomitant]
  4. KLONOPIN [Concomitant]
  5. EFFEXOR [Concomitant]
     Indication: DEPRESSION
  6. DANTROLENE SODIUM [Concomitant]

REACTIONS (6)
  - PATHOGEN RESISTANCE [None]
  - URINARY TRACT INFECTION [None]
  - INCONTINENCE [None]
  - KIDNEY INFECTION [None]
  - NIGHT SWEATS [None]
  - INJECTION SITE PAIN [None]
